FAERS Safety Report 7638840-8 (Version None)
Quarter: 2011Q3

REPORT INFORMATION
  Report Type: 
  Country: None (occurrence: None)
  Receive Date: 20110727
  Receipt Date: 20110719
  Transmission Date: 20111222
  Serious: Yes (Other)
  Sender: FDA-Public Use
  Company Number: US-BRACCO-004885

PATIENT
  Sex: Male
  Weight: 81.82 kg

DRUGS (50)
  1. CONTRAST MEDIA [Suspect]
     Indication: CARDIAC FAILURE CONGESTIVE
     Dates: start: 19901213
  2. NOVOLOG [Concomitant]
     Dosage: DOSE: 70/30
  3. GABAPENTIN [Concomitant]
  4. NEPHROVITE [Concomitant]
  5. INDERAL [Concomitant]
  6. OMNISCAN [Suspect]
     Indication: ANGIOGRAM
     Dates: start: 20040504, end: 20040504
  7. AMBIEN [Concomitant]
  8. METOPROLOL TARTRATE [Concomitant]
  9. ASPIRIN [Concomitant]
  10. RANEXA [Concomitant]
  11. NEURONTIN [Concomitant]
  12. FLOMAX [Concomitant]
  13. CONTRAST MEDIA [Suspect]
     Indication: ANGIOGRAM
     Dates: start: 20050304
  14. CONTRAST MEDIA [Suspect]
     Indication: RENAL ARTERY STENOSIS
     Dates: start: 20010904
  15. CONTRAST MEDIA [Suspect]
     Dates: start: 20040504
  16. MAGNEVIST [Suspect]
     Indication: NUCLEAR MAGNETIC RESONANCE IMAGING ABDOMINAL
     Dates: start: 20050304, end: 20050304
  17. MAGNEVIST [Suspect]
     Indication: ANGIOPLASTY
     Dates: start: 20050315, end: 20050315
  18. ARANESP [Concomitant]
  19. OMNISCAN [Suspect]
     Indication: NUCLEAR MAGNETIC RESONANCE IMAGING
     Dates: start: 20030402
  20. CONTRAST MEDIA [Suspect]
     Indication: RENAL FAILURE CHRONIC
     Dates: start: 20001026
  21. CELLCEPT [Concomitant]
  22. IMDUR [Concomitant]
  23. COREG [Concomitant]
  24. JANUVIA [Concomitant]
  25. LASIX [Concomitant]
  26. PREDNISONE TAB [Concomitant]
  27. DEMADEX [Concomitant]
  28. MAGNEVIST [Suspect]
     Indication: INVESTIGATION
     Dates: start: 20050304, end: 20050304
  29. PLAVIX [Concomitant]
  30. ASPIRIN [Concomitant]
  31. AVAPRO [Concomitant]
  32. CONTRAST MEDIA [Suspect]
     Indication: NUCLEAR MAGNETIC RESONANCE IMAGING
     Dates: start: 20030402
  33. CONTRAST MEDIA [Suspect]
     Dates: start: 20031116
  34. MAGNEVIST [Suspect]
     Indication: NUCLEAR MAGNETIC RESONANCE IMAGING
     Dates: start: 20040504, end: 20040504
  35. RENAGEL [Concomitant]
  36. FERROUS SULFATE TAB [Concomitant]
  37. LIPITOR [Concomitant]
  38. LOPRESSOR [Concomitant]
  39. CONTRAST MEDIA [Suspect]
     Indication: CORONARY ARTERY DISEASE
     Dates: start: 20031010
  40. CONTRAST MEDIA [Suspect]
     Dates: start: 20050315
  41. PROHANCE [Suspect]
     Indication: NUCLEAR MAGNETIC RESONANCE IMAGING BRAIN
     Dates: start: 20030508, end: 20030508
  42. PIOGLITAZONE [Concomitant]
  43. DIOVAN [Concomitant]
  44. DILTIAZEM [Concomitant]
  45. STARLIX [Concomitant]
  46. VISIPAQUE [Suspect]
     Indication: ANGIOPLASTY
     Dates: start: 20050315, end: 20050315
  47. PROHANCE [Suspect]
     Indication: ANGIOGRAM
     Dates: start: 20031116, end: 20031116
  48. PROGRAF [Concomitant]
  49. COZAAR [Concomitant]
  50. ALLOPURINOL [Concomitant]

REACTIONS (1)
  - NEPHROGENIC SYSTEMIC FIBROSIS [None]
